FAERS Safety Report 25292437 (Version 1)
Quarter: 2025Q2

REPORT INFORMATION
  Report Type: Spontaneous
  Country: US (occurrence: US)
  Receive Date: 20250510
  Receipt Date: 20250510
  Transmission Date: 20250717
  Serious: No
  Sender: SANOFI AVENTIS
  Company Number: US-SA-2025SA124766

PATIENT
  Age: 8 Year
  Sex: Female

DRUGS (7)
  1. FABRAZYME [Suspect]
     Active Substance: AGALSIDASE BETA
     Indication: Fabry^s disease
     Dosage: 60 MG, QOW
     Route: 042
     Dates: start: 2013
  2. HEPARIN LOCK FLUSH [Concomitant]
     Active Substance: HEPARIN SODIUM
  3. ACETAMINOPHEN [Concomitant]
     Active Substance: ACETAMINOPHEN
  4. SODIUM CHLORIDE [Concomitant]
     Active Substance: SODIUM CHLORIDE
  5. EPINEPHRINE [EPINEPHRINE HYDROCHLORIDE] [Concomitant]
  6. LIDOCAINE AND PRILOCAINE [Concomitant]
     Active Substance: LIDOCAINE\PRILOCAINE
  7. HYDROXYZINE HYDROCHLORIDE [Concomitant]
     Active Substance: HYDROXYZINE HYDROCHLORIDE

REACTIONS (8)
  - Formication [Unknown]
  - Proteinuria [Unknown]
  - Temperature intolerance [Unknown]
  - Exercise tolerance decreased [Unknown]
  - Diarrhoea [Unknown]
  - Burning sensation [Unknown]
  - Paraesthesia [Unknown]
  - Abdominal pain upper [Unknown]
